FAERS Safety Report 22247660 (Version 2)
Quarter: 2024Q2

REPORT INFORMATION
  Report Type: Spontaneous
  Country: US (occurrence: US)
  Receive Date: 20230425
  Receipt Date: 20240422
  Transmission Date: 20240716
  Serious: No
  Sender: FDA-Public Use
  Company Number: US-Melinta Therapeutics, LLC-US-MLNT-22-00229

PATIENT
  Sex: Female
  Weight: 92.1 kg

DRUGS (3)
  1. METOPROLOL SUCCINATE [Suspect]
     Active Substance: METOPROLOL SUCCINATE
     Indication: Product used for unknown indication
     Dosage: NOT PROVIDED.
  2. TAGRISSO [Concomitant]
     Active Substance: OSIMERTINIB
     Indication: Lung neoplasm malignant
     Dosage: 80 MILLIGRAM, QD
     Route: 048
     Dates: start: 201806
  3. TAGRISSO [Concomitant]
     Active Substance: OSIMERTINIB
     Indication: Metastases to lymph nodes

REACTIONS (1)
  - Drug hypersensitivity [Unknown]
